FAERS Safety Report 4482409-3 (Version None)
Quarter: 2004Q4

REPORT INFORMATION
  Report Type: 
  Country: None (occurrence: None)
  Receive Date: 20041022
  Receipt Date: 20040701
  Transmission Date: 20050328
  Serious: No
  Sender: FDA-Public Use
  Company Number: US-BRISTOL-MYERS SQUIBB COMPANY-12630166

PATIENT
  Age: 44 Year
  Sex: Male
  Weight: 100 kg

DRUGS (2)
  1. BUSPAR [Suspect]
     Indication: SCHIZOPHRENIA
     Route: 048
     Dates: start: 19920101, end: 20040601
  2. STELAZINE [Suspect]

REACTIONS (5)
  - COW'S MILK INTOLERANCE [None]
  - DRUG INEFFECTIVE [None]
  - FATIGUE [None]
  - IRRITABILITY [None]
  - RASH PRURITIC [None]
